FAERS Safety Report 13666178 (Version 1)
Quarter: 2017Q2

REPORT INFORMATION
  Report Type: Spontaneous
  Country: US (occurrence: US)
  Receive Date: 20170619
  Receipt Date: 20170619
  Transmission Date: 20170830
  Serious: No
  Sender: FDA-Public Use
  Company Number: US-ROCHE-1146158

PATIENT
  Age: 35 Year
  Sex: Female

DRUGS (3)
  1. XELODA [Suspect]
     Active Substance: CAPECITABINE
     Dosage: 1500 MG IN THE MORNING AND 1000 IN THE EVENING
     Route: 048
  2. XELODA [Suspect]
     Active Substance: CAPECITABINE
     Indication: BREAST CANCER
     Dosage: 1500 MG IN THE MORNING AND 1000 IN THE EVENING
     Route: 048
     Dates: start: 20121001
  3. XELODA [Suspect]
     Active Substance: CAPECITABINE
     Dosage: 2000 MG IN THE MORNING AND 1500 IN THE EVENING
     Route: 048
     Dates: start: 20121015

REACTIONS (2)
  - Hypoaesthesia [Unknown]
  - Paraesthesia [Unknown]

NARRATIVE: CASE EVENT DATE: 20121004
